FAERS Safety Report 5644331-6 (Version None)
Quarter: 2008Q1

REPORT INFORMATION
  Report Type: 
  Country: None (occurrence: None)
  Receive Date: 20080229
  Receipt Date: 20080226
  Transmission Date: 20080703
  Serious: Yes (Death, Hospitalization)
  Sender: FDA-Public Use
  Company Number: CA-ASTRAZENECA-2008UW03906

PATIENT
  Age: 55 Year
  Sex: Male

DRUGS (6)
  1. PRILOSEC [Suspect]
     Route: 048
     Dates: start: 19970101
  2. ENBREL [Suspect]
     Indication: PSORIATIC ARTHROPATHY
     Route: 058
     Dates: start: 20051109, end: 20060502
  3. METHOTREXATE [Concomitant]
     Dates: start: 20020202, end: 20060501
  4. ATENOLOL [Concomitant]
     Route: 048
     Dates: start: 19961001
  5. ATORVASTATIN CALCIUM [Concomitant]
     Dates: start: 19961001
  6. SULINDAC [Concomitant]
     Dates: start: 20060208

REACTIONS (3)
  - DEATH [None]
  - LUNG ADENOCARCINOMA METASTATIC [None]
  - RESPIRATORY FAILURE [None]
